FAERS Safety Report 13736050 (Version 1)
Quarter: 2017Q3

REPORT INFORMATION
  Report Type: Report from Study
  Country: US (occurrence: BR)
  Receive Date: 20170710
  Receipt Date: 20170710
  Transmission Date: 20171127
  Serious: Yes (Death, Other)
  Sender: FDA-Public Use
  Company Number: US-SUNOVION-2017SUN002913

PATIENT
  Sex: Male
  Weight: 80 kg

DRUGS (1)
  1. INDACATEROL AND GLYCOPYRROLATE [Suspect]
     Active Substance: GLYCOPYRROLATE\INDACATEROL MALEATE
     Indication: DYSPNOEA
     Dosage: 1 DF (110/50 UG), UNK
     Route: 055

REACTIONS (4)
  - Respiratory failure [Fatal]
  - Weight decreased [Unknown]
  - Product use in unapproved indication [Unknown]
  - Lung neoplasm malignant [Fatal]
